FAERS Safety Report 5927486-5 (Version None)
Quarter: 2008Q4

REPORT INFORMATION
  Report Type: 
  Country: None (occurrence: None)
  Receive Date: 20081021
  Receipt Date: 20081021
  Transmission Date: 20090506
  Serious: Yes (Other)
  Sender: FDA-Public Use
  Company Number: None

PATIENT
  Age: 50 Year
  Sex: Female
  Weight: 79.3795 kg

DRUGS (1)
  1. CORTROSYN [Suspect]
     Indication: ACTH STIMULATION TEST
     Dosage: ONE DOSE
     Dates: start: 20081020, end: 20081020

REACTIONS (3)
  - DIZZINESS [None]
  - HEADACHE [None]
  - NAUSEA [None]
